FAERS Safety Report 11102245 (Version 2)
Quarter: 2015Q3

REPORT INFORMATION
  Report Type: Report from Study
  Country: NL (occurrence: NL)
  Receive Date: 20150511
  Receipt Date: 20150709
  Transmission Date: 20151125
  Serious: Yes (Other)
  Sender: FDA-Public Use
  Company Number: NL-AMGEN-NLDSL2015043478

PATIENT
  Sex: Female

DRUGS (17)
  1. PANTOPRAZOLE [Concomitant]
     Active Substance: PANTOPRAZOLE SODIUM
     Dosage: 40 MG, UNK
     Dates: start: 20141204
  2. CALCIUM CARBONATE W/COLECALCIFEROL [Concomitant]
     Active Substance: CALCIUM CARBONATE\CHOLECALCIFEROL
     Dosage: 1.25 G/500 MG, UNK
     Dates: start: 20141204
  3. PERINDOPRIL + INDAPAMIDA SANDOZ [Concomitant]
     Dosage: UNK
     Dates: start: 20141204
  4. DALTEPARINE SODIQUE [Concomitant]
     Dosage: 0.5 ML, UNK
     Dates: start: 20140801
  5. OXYCODON [Concomitant]
     Active Substance: OXYCODONE
     Dosage: 5 MG, UNK
     Dates: start: 20140206
  6. CLOPIDOGREL [Concomitant]
     Active Substance: CLOPIDOGREL BISULFATE
     Dosage: 75 MG, UNK
     Dates: start: 20141204
  7. SOTALOL. [Concomitant]
     Active Substance: SOTALOL
     Dosage: 80 MG, UNK
     Dates: start: 20130917
  8. TAMOXIFEN [Concomitant]
     Active Substance: TAMOXIFEN
     Dosage: 20 MG, UNK
     Dates: start: 20130410
  9. SIMVASTATINE [Concomitant]
     Active Substance: SIMVASTATIN
     Dosage: 40 MG, UNK
     Dates: start: 20141204
  10. XGEVA [Suspect]
     Active Substance: DENOSUMAB
     Indication: PRODUCT USED FOR UNKNOWN INDICATION
     Dosage: 1.7 ML (70 MG/ML), Q4WK
     Route: 058
     Dates: start: 20130410
  11. NOLVADEX                           /00388701/ [Concomitant]
     Active Substance: TAMOXIFEN CITRATE
     Indication: BREAST CANCER METASTATIC
     Dosage: UNK
     Dates: start: 20130410
  12. NOLVADEX                           /00388701/ [Concomitant]
     Active Substance: TAMOXIFEN CITRATE
     Indication: METASTASES TO LUNG
  13. FENTANYL. [Concomitant]
     Active Substance: FENTANYL
     Dosage: 50 MUG, UNK
     Dates: start: 20131204
  14. INSULIN GLARGINE [Concomitant]
     Active Substance: INSULIN GLARGINE
     Dosage: 100 UNK, UNK
     Dates: start: 20090302
  15. METFORMIN [Concomitant]
     Active Substance: METFORMIN HYDROCHLORIDE
     Dosage: 500 MG, UNK
     Dates: start: 20141204
  16. MACROGOL [Concomitant]
     Active Substance: POLYETHYLENE GLYCOLS
     Dosage: UNK
     Dates: start: 20090302
  17. DEXTRAN [Concomitant]
     Active Substance: DEXTRAN
     Dosage: 15 ML, UNK
     Dates: start: 20141204

REACTIONS (8)
  - Peripheral swelling [Unknown]
  - Back pain [Unknown]
  - Pulmonary embolism [Unknown]
  - Pain in extremity [Unknown]
  - Abdominal wall haemorrhage [Unknown]
  - Arthralgia [Unknown]
  - Paraesthesia [Unknown]
  - Oedema [Unknown]

NARRATIVE: CASE EVENT DATE: 20130625
